FAERS Safety Report 6668589-X (Version None)
Quarter: 2010Q2

REPORT INFORMATION
  Report Type: 
  Country: None (occurrence: None)
  Receive Date: 20100406
  Receipt Date: 20100325
  Transmission Date: 20101027
  Serious: Yes (Other)
  Sender: FDA-Public Use
  Company Number: US-BRISTOL-MYERS SQUIBB COMPANY-15035454

PATIENT
  Sex: Male

DRUGS (3)
  1. ONGLYZA [Suspect]
     Indication: DIABETES MELLITUS
     Dates: start: 20100119, end: 20100325
  2. LIPITOR [Suspect]
     Dates: start: 20100119, end: 20100325
  3. GLUCOVANCE [Concomitant]

REACTIONS (1)
  - PANCREATITIS [None]
